FAERS Safety Report 10641254 (Version 3)
Quarter: 2015Q1

REPORT INFORMATION
  Report Type: Spontaneous
  Country: IT (occurrence: IT)
  Receive Date: 20141209
  Receipt Date: 20150122
  Transmission Date: 20150720
  Serious: Yes (Hospitalization, Other)
  Sender: FDA-Public Use
  Company Number: IT-PFIZER INC-2014333209

PATIENT
  Age: 70 Year
  Sex: Female
  Weight: 59 kg

DRUGS (10)
  1. DELTACORTENE [Concomitant]
     Active Substance: PREDNISONE
     Dosage: 12.5 MG, UNK
     Route: 048
  2. MAG 2 [Concomitant]
     Active Substance: MAGNESIUM CHLORIDE
     Dosage: 2 DF, UNK
     Route: 048
  3. CREON [Concomitant]
     Active Substance: PANCRELIPASE AMYLASE\PANCRELIPASE LIPASE\PANCRELIPASE PROTEASE
     Dosage: 3 DF, UNK
     Route: 048
  4. PANTOPRAZOLE SODIUM [Concomitant]
     Active Substance: PANTOPRAZOLE SODIUM
     Dosage: 80 MG, UNK
     Route: 048
  5. COUMADIN [Concomitant]
     Active Substance: WARFARIN SODIUM
     Indication: ATRIAL FIBRILLATION
     Dosage: UNK
     Route: 048
     Dates: start: 20110728, end: 20140923
  6. INLYTA [Suspect]
     Active Substance: AXITINIB
     Indication: RENAL CANCER
     Dosage: 2 DF, 1X/DAY
     Route: 048
     Dates: start: 20140905, end: 20140923
  7. KANRENOL [Concomitant]
     Active Substance: CANRENOATE POTASSIUM
     Dosage: 50 MG, UNK
     Route: 048
  8. BISOPROLOL HEMIFUMARATE [Concomitant]
     Active Substance: BISOPROLOL FUMARATE
     Dosage: 2.5 MG, UNK
     Route: 048
  9. PLASIL [Concomitant]
     Active Substance: METOCLOPRAMIDE HYDROCHLORIDE
     Dosage: 1 DF, UNK
     Route: 048
  10. FUROSEMIDE. [Concomitant]
     Active Substance: FUROSEMIDE
     Dosage: 50 MG, UNK
     Route: 048

REACTIONS (9)
  - Urinary tract infection [Unknown]
  - Thrombocytopenia [Recovering/Resolving]
  - Electrolyte imbalance [Unknown]
  - Renal impairment [Unknown]
  - Hallucination, visual [Recovering/Resolving]
  - Anuria [Unknown]
  - Posterior reversible encephalopathy syndrome [Recovering/Resolving]
  - Blood pressure increased [Recovering/Resolving]
  - Headache [Recovering/Resolving]

NARRATIVE: CASE EVENT DATE: 20140912
